FAERS Safety Report 4655450-5 (Version None)
Quarter: 2005Q2

REPORT INFORMATION
  Report Type: 
  Country: None (occurrence: None)
  Receive Date: 20050505
  Receipt Date: 20050421
  Transmission Date: 20051028
  Serious: Yes (Other)
  Sender: FDA-Public Use
  Company Number: 2005_000031

PATIENT
  Age: 48 Year
  Sex: Male
  Weight: 73.0291 kg

DRUGS (18)
  1. DEPOCYT [Suspect]
     Indication: NON-HODGKIN'S LYMPHOMA
     Dosage: 50 MG; X1; INTRATHECAL
     Route: 037
     Dates: start: 20050414, end: 20050414
  2. ACYCLOVIR [Concomitant]
  3. ALLOPURINOL [Concomitant]
  4. CEFEPIME [Concomitant]
  5. FRAGMIN [Concomitant]
  6. FLUCONAZOLE [Concomitant]
  7. CLARITIN [Concomitant]
  8. MULTIVITAMINS, PLAIN [Concomitant]
  9. PROTON [Concomitant]
  10. ANTIINFLAMMATORY AGENTS, OPHTHALMIC [Concomitant]
  11. LAXATIVES [Concomitant]
  12. PREDNISONE [Concomitant]
  13. SENNA [Concomitant]
  14. FILGRASTIM [Concomitant]
  15. CARBOPLATIN [Concomitant]
  16. ETOPOSIDE [Concomitant]
  17. MESNA [Concomitant]
  18. DEXAMETHASONE [Concomitant]

REACTIONS (4)
  - ARACHNOIDITIS [None]
  - MANIA [None]
  - TREMOR [None]
  - VOMITING [None]
